FAERS Safety Report 10066587 (Version 3)
Quarter: 2014Q2

REPORT INFORMATION
  Report Type: Spontaneous
  Country: CA (occurrence: CA)
  Receive Date: 20140408
  Receipt Date: 20140603
  Transmission Date: 20141212
  Serious: Yes (Other)
  Sender: FDA-Public Use
  Company Number: CHPA2014CA004819

PATIENT
  Age: 73 Year
  Sex: Female

DRUGS (1)
  1. KERI ORIGINAL SOFTLY SCENTED [Suspect]
     Indication: DRY SKIN
     Dosage: 2 TO 3 TIMES DAILY
     Route: 061

REACTIONS (3)
  - Dysphagia [Unknown]
  - Dyspepsia [Unknown]
  - Drug ineffective [Unknown]
